FAERS Safety Report 8034481-1 (Version None)
Quarter: 2012Q1

REPORT INFORMATION
  Report Type: 
  Country: None (occurrence: None)
  Receive Date: 20120110
  Receipt Date: 20120106
  Transmission Date: 20120608
  Serious: Yes (Life-Threatening, Other)
  Sender: FDA-Public Use
  Company Number: IE-B.I. PHARMACEUTICALS,INC./RIDGEFIELD-2011-UK-01101UK

PATIENT
  Sex: Female
  Weight: 85 kg

DRUGS (5)
  1. PRADAXA [Suspect]
     Indication: THROMBOSIS PROPHYLAXIS
     Dosage: 150 MG
     Route: 048
     Dates: start: 20110926, end: 20110929
  2. COZAAR [Concomitant]
     Indication: HYPERTENSION
     Dosage: 100 MG
     Route: 048
  3. PRADAXA [Suspect]
     Indication: KNEE ARTHROPLASTY
  4. LEVOTHYROXINE SODIUM [Concomitant]
     Indication: HYPOTHYROIDISM
     Dosage: 125 MCG
     Route: 048
  5. CRESTOR [Concomitant]
     Indication: BLOOD CHOLESTEROL INCREASED
     Dosage: 10 MG
     Route: 048

REACTIONS (1)
  - PULMONARY EMBOLISM [None]
